FAERS Safety Report 7347020-5 (Version None)
Quarter: 2011Q1

REPORT INFORMATION
  Report Type: 
  Country: None (occurrence: None)
  Receive Date: 20110311
  Receipt Date: 20110302
  Transmission Date: 20110831
  Serious: Yes (Hospitalization)
  Sender: FDA-Public Use
  Company Number: PHHO2010JP02740

PATIENT
  Sex: Male
  Weight: 66 kg

DRUGS (27)
  1. ROCALTROL [Concomitant]
  2. TRYPTANOL [Concomitant]
     Indication: HEADACHE
  3. LOXOPROFEN [Concomitant]
     Indication: PAIN
  4. KETOPROFEN [Concomitant]
     Indication: PAIN
  5. CABASER [Concomitant]
     Dosage: UNK
     Dates: start: 20090627
  6. RAD001 [Suspect]
     Indication: PANCREATIC NEUROENDOCRINE TUMOUR
     Dosage: 10 MG, DAILY
     Route: 048
     Dates: start: 20091218, end: 20100929
  7. RAD001 [Suspect]
     Dosage: 10 MG, DAILY
     Route: 048
     Dates: start: 20101006
  8. SANDOSTATIN LAR [Concomitant]
     Indication: PANCREATIC NEUROENDOCRINE TUMOUR
     Dosage: UNK
     Dates: start: 20080823
  9. SERENACE [Concomitant]
     Dosage: UNK
     Dates: start: 20100622
  10. MYSLEE [Concomitant]
  11. BASEN [Concomitant]
     Indication: DIABETES MELLITUS
  12. MUCOSTA [Concomitant]
     Dosage: UNK
     Dates: start: 20100120
  13. FENTANYL CITRATE [Concomitant]
  14. ALDACTONE [Concomitant]
  15. PLACEBO [Suspect]
     Indication: PANCREATIC NEUROENDOCRINE TUMOUR
     Dosage: PLACEBO
     Route: 048
     Dates: start: 20090402, end: 20091217
  16. PANCREAZE [Concomitant]
  17. ADETPHOS [Concomitant]
     Indication: ASTHENOPIA
  18. PENTAZOCINE LACTATE [Concomitant]
  19. VITANEURIN [Concomitant]
     Indication: ASTHENOPIA
  20. SELBEX [Concomitant]
     Indication: GASTRITIS PROPHYLAXIS
  21. TESTOSTERONE ENANTHATE [Concomitant]
  22. CINAL [Concomitant]
     Indication: ASTHENOPIA
  23. METHYCOBAL [Concomitant]
     Indication: ASTHENOPIA
  24. OPSO DAINIPPON [Concomitant]
  25. ZOMETA [Concomitant]
     Indication: METASTASES TO BONE
     Dosage: UNK
     Dates: start: 20090407
  26. PANCREATIN [Concomitant]
  27. NOVORAPID [Concomitant]
     Indication: DIABETES MELLITUS

REACTIONS (8)
  - MUSCULOSKELETAL PAIN [None]
  - SPINAL COMPRESSION FRACTURE [None]
  - ABDOMINAL PAIN [None]
  - ABDOMINAL PAIN LOWER [None]
  - DEHYDRATION [None]
  - METASTASES TO LYMPH NODES [None]
  - METASTASES TO BONE [None]
  - VOMITING [None]
